FAERS Safety Report 12230640 (Version 2)
Quarter: 2016Q2

REPORT INFORMATION
  Report Type: Spontaneous
  Country: US (occurrence: US)
  Receive Date: 20160401
  Receipt Date: 20160601
  Transmission Date: 20160815
  Serious: No
  Sender: FDA-Public Use
  Company Number: US-BAYER-2016-054559

PATIENT
  Age: 46 Year
  Sex: Female
  Weight: 70.29 kg

DRUGS (1)
  1. MIRALAX [Suspect]
     Active Substance: POLYETHYLENE GLYCOL 3350
     Indication: LAXATIVE SUPPORTIVE CARE
     Dosage: 1-2 DF, QD
     Route: 048
     Dates: start: 2013

REACTIONS (2)
  - Circumstance or information capable of leading to medication error [None]
  - Product use issue [None]
